FAERS Safety Report 13225127 (Version 3)
Quarter: 2017Q1

REPORT INFORMATION
  Report Type: Spontaneous
  Country: BR (occurrence: BR)
  Receive Date: 20170213
  Receipt Date: 20170227
  Transmission Date: 20170428
  Serious: Yes (Other)
  Sender: FDA-Public Use
  Company Number: BR-ROCHE-1889932

PATIENT
  Sex: Male

DRUGS (2)
  1. RIVOTRIL [Suspect]
     Active Substance: CLONAZEPAM
     Indication: PRODUCT USED FOR UNKNOWN INDICATION
     Route: 048
     Dates: start: 1997
  2. INSULIN [Concomitant]
     Active Substance: INSULIN NOS
     Indication: TYPE 1 DIABETES MELLITUS
     Route: 065

REACTIONS (16)
  - Insomnia [Unknown]
  - Metabolic disorder [Unknown]
  - Memory impairment [Not Recovered/Not Resolved]
  - Wrong technique in product usage process [Unknown]
  - Syncope [Unknown]
  - Product dropper issue [Unknown]
  - Drug dependence [Unknown]
  - Ill-defined disorder [Unknown]
  - Rash [Not Recovered/Not Resolved]
  - Fall [Unknown]
  - Accidental overdose [Unknown]
  - Cold sweat [Unknown]
  - Exostosis [Not Recovered/Not Resolved]
  - Incorrect product storage [Unknown]
  - Diabetic coma [Unknown]
  - Poor peripheral circulation [Unknown]
